FAERS Safety Report 18078588 (Version 1)
Quarter: 2020Q3

REPORT INFORMATION
  Report Type: Spontaneous
  Country: US (occurrence: US)
  Receive Date: 20200728
  Receipt Date: 20200728
  Transmission Date: 20201103
  Serious: Yes (Other)
  Sender: FDA-Public Use
  Company Number: US-DRREDDYS-USA/USA/20/0125169

PATIENT
  Sex: Female
  Weight: 65.31 kg

DRUGS (1)
  1. MERCAPTOPURINE. [Suspect]
     Active Substance: MERCAPTOPURINE
     Indication: PRIMARY BILIARY CHOLANGITIS
     Route: 048
     Dates: start: 2011

REACTIONS (2)
  - Squamous cell carcinoma of skin [Unknown]
  - Staphylococcal infection [Unknown]
